FAERS Safety Report 7071068-1 (Version None)
Quarter: 2010Q4

REPORT INFORMATION
  Report Type: 
  Country: None (occurrence: None)
  Receive Date: 20101021
  Receipt Date: 20101014
  Transmission Date: 20110411
  Serious: Yes (Other)
  Sender: FDA-Public Use
  Company Number: A0886679A

PATIENT
  Age: 66 Year
  Sex: Female

DRUGS (2)
  1. CALCIUM CARBONATE [Suspect]
     Indication: HYPERCHLORHYDRIA
  2. SIMETHICONE [Concomitant]

REACTIONS (4)
  - ABDOMINAL PAIN UPPER [None]
  - DRUG ADMINISTRATION ERROR [None]
  - FAECES DISCOLOURED [None]
  - HAEMORRHAGE [None]
